FAERS Safety Report 9529718 (Version 1)
Quarter: 2013Q3

REPORT INFORMATION
  Report Type: Spontaneous
  Country: US (occurrence: US)
  Receive Date: 20130917
  Receipt Date: 20130917
  Transmission Date: 20140515
  Serious: Yes (Hospitalization)
  Sender: FDA-Public Use
  Company Number: US-SANOFI-AVENTIS-2013SA044718

PATIENT
  Age: 65 Year
  Sex: Male

DRUGS (4)
  1. DESMOPRESSIN ACETATE [Suspect]
     Indication: NOCTURIA
     Route: 045
     Dates: start: 2010, end: 201304
  2. ZOLADEX [Concomitant]
     Indication: PROSTATE CANCER
  3. MST [Concomitant]
     Indication: PAIN
  4. ALL OTHER THERAPEUTIC PRODUCTS [Concomitant]
     Indication: PROSTATE CANCER

REACTIONS (1)
  - Hyponatraemia [Recovered/Resolved]
